FAERS Safety Report 9251412 (Version 1)
Quarter: 2013Q1

REPORT INFORMATION
  Report Type: Spontaneous
  Country: US (occurrence: None)
  Receive Date: 20130305
  Receipt Date: 20130305
  Transmission Date: 20140127
  Serious: Yes (Hospitalization)
  Sender: FDA-Public Use
  Company Number: 163-21880-12082042

PATIENT
  Age: 64 Year
  Sex: Female
  Weight: 91.63 kg

DRUGS (24)
  1. REVLIMID [Suspect]
     Indication: PLASMA CELL MYELOMA
     Dosage: 05/26/2012 - HELD?21 IN 28 D
     Route: 048
     Dates: start: 20120526
  2. BORTEZOMIB [Concomitant]
  3. DEXAMETHASONE [Concomitant]
  4. DONEPEZIL [Concomitant]
  5. FLUOXETINE [Concomitant]
  6. LOSARTAN [Concomitant]
  7. METOPROLOL TARTRATE [Concomitant]
  8. DICLOFENAC SODIUM [Concomitant]
  9. FERROUS SULFATE [Concomitant]
  10. ASPIRIN (ACETYLSALICYLIC ACID) [Concomitant]
  11. HYDROCHLOROTHIAZIDE [Concomitant]
  12. ALBUTEROL (SALBUTAMOL) (INHALENT) [Concomitant]
  13. OXYCODONE-ACETAMINOPHEN (OXYCOCET) [Concomitant]
  14. TRIMETHOPRIM-SULFAMETHOXAZOLE (BACTRIM) [Concomitant]
  15. FUROSEMIDE [Concomitant]
  16. FLUTICASONE-SALMETEROL (SERETIDE MITE) (SPRAY  (NOT INHALATION)) [Concomitant]
  17. KETOPROFEN [Concomitant]
  18. PROMETHAZINE [Concomitant]
  19. ZOLPIDEM [Concomitant]
  20. OXYCODONE [Concomitant]
  21. AMLODIPINE [Concomitant]
  22. KLOR-CON (POTASSIUM CHLORIDE) [Concomitant]
  23. NAMENDA (MEMANTINE HYDROCHLORIDE) [Concomitant]
  24. PROMETHAZINE HCL (PROMETHAZINE HYDROCHLORIDE) [Concomitant]

REACTIONS (3)
  - Dehydration [None]
  - Diarrhoea [None]
  - Renal failure acute [None]
